FAERS Safety Report 19410511 (Version 1)
Quarter: 2021Q2

REPORT INFORMATION
  Report Type: Spontaneous
  Country: US (occurrence: US)
  Receive Date: 20210611
  Receipt Date: 20210611
  Transmission Date: 20210717
  Serious: Yes (Hospitalization)
  Sender: FDA-Public Use
  Company Number: None

PATIENT
  Age: 70 Year
  Sex: Female

DRUGS (14)
  1. IRON [Concomitant]
     Active Substance: IRON
  2. MIRALEX [Concomitant]
  3. CARVEDIOL [Concomitant]
     Active Substance: CARVEDILOL
  4. TYLENOL [Concomitant]
     Active Substance: ACETAMINOPHEN
  5. FUROSEMIDE. [Concomitant]
     Active Substance: FUROSEMIDE
  6. GABAPENTIN. [Concomitant]
     Active Substance: GABAPENTIN
  7. METFORMIN [Concomitant]
     Active Substance: METFORMIN HYDROCHLORIDE
  8. REPATHA [Suspect]
     Active Substance: EVOLOCUMAB
     Indication: ARTERIOSCLEROSIS
     Route: 058
     Dates: start: 20210414
  9. ASPIRIN. [Concomitant]
     Active Substance: ASPIRIN
  10. HYDRALAZINE [Concomitant]
     Active Substance: HYDRALAZINE HYDROCHLORIDE
  11. IISINOPRIL [Concomitant]
  12. FLUTICASONE. [Concomitant]
     Active Substance: FLUTICASONE
  13. LEVOTHYOXINE [Concomitant]
     Active Substance: LEVOTHYROXINE
  14. VITAMIN D3 [Concomitant]
     Active Substance: CHOLECALCIFEROL

REACTIONS (4)
  - Fall [None]
  - Nausea [None]
  - Urinary tract infection [None]
  - Rib fracture [None]
